FAERS Safety Report 4425164-5 (Version None)
Quarter: 2004Q3

REPORT INFORMATION
  Report Type: 
  Country: None (occurrence: None)
  Receive Date: 20040809
  Receipt Date: 20040722
  Transmission Date: 20050211
  Serious: Yes (Other)
  Sender: FDA-Public Use
  Company Number: 2004S1000059

PATIENT
  Age: 44 Year
  Sex: Female

DRUGS (1)
  1. ACITRETIN (ACITRETIN) [Suspect]
     Indication: PSORIASIS

REACTIONS (3)
  - ALOPECIA [None]
  - AMENORRHOEA [None]
  - HAIR DISORDER [None]
